FAERS Safety Report 4796452-8 (Version None)
Quarter: 2005Q3

REPORT INFORMATION
  Report Type: 
  Country: None (occurrence: None)
  Receive Date: 20050916
  Receipt Date: 20040912
  Transmission Date: 20060218
  Serious: Yes (Hospitalization)
  Sender: FDA-Public Use
  Company Number: US-JNJFOC-20040900734

PATIENT
  Age: 57 Year
  Sex: Female
  Weight: 68.0396 kg

DRUGS (4)
  1. TOPAMAX [Suspect]
     Indication: BIPOLAR II DISORDER
     Dosage: 100 MG
  2. BENTYL [Concomitant]
  3. ALLEVERT (LORATADINE) [Concomitant]
  4. ZANAX (ALPRAZOLAM) [Concomitant]

REACTIONS (2)
  - GASTRITIS [None]
  - WEIGHT DECREASED [None]
